FAERS Safety Report 6724538-7 (Version None)
Quarter: 2010Q2

REPORT INFORMATION
  Report Type: 
  Country: None (occurrence: None)
  Receive Date: 20100513
  Receipt Date: 20100413
  Transmission Date: 20101027
  Serious: Yes (Other)
  Sender: FDA-Public Use
  Company Number: US-PFIZER INC-2010035817

PATIENT
  Sex: Female

DRUGS (3)
  1. XALATAN [Suspect]
     Indication: GLAUCOMA
     Dosage: ONE DROP EACH EYE DAILY
     Route: 047
  2. ALPHAGAN [Concomitant]
     Dosage: UNK, IN LEFT EYE
     Route: 047
  3. COSOPT [Concomitant]
     Dosage: UNK, IN RIGHT EYE
     Route: 047

REACTIONS (3)
  - ASTIGMATISM [None]
  - CATARACT OPERATION [None]
  - GROWTH OF EYELASHES [None]
